FAERS Safety Report 9735624 (Version 1)
Quarter: 2013Q4

REPORT INFORMATION
  Report Type: Spontaneous
  Country: CH (occurrence: CH)
  Receive Date: 20131206
  Receipt Date: 20131206
  Transmission Date: 20140711
  Serious: Yes (Other)
  Sender: FDA-Public Use
  Company Number: PHHY2013CH138644

PATIENT
  Age: 1 Day
  Sex: Male

DRUGS (14)
  1. DIOVAN [Suspect]
     Dosage: MATERNAL DOSE 160 MG
     Route: 064
     Dates: end: 2013
  2. ALUCOL [Suspect]
     Dosage: MATRNAL DOSE 20 MG
     Route: 064
  3. ADALAT [Suspect]
     Dosage: MATERNAL DOSE 60 MG
     Route: 064
  4. TRANDATE [Suspect]
     Dosage: MATERNAL DOSE 100 MG
     Route: 064
  5. FRAGMIN [Suspect]
     Dosage: MATERNAL DOSE 5000 IU
     Route: 064
  6. MEPHAMESONE [Suspect]
     Dosage: MATERNAL DOSE 16 MG (8 MG/2 ML)
     Route: 064
  7. ELOSON [Suspect]
     Dosage: UNK UKN, UNK
     Route: 064
  8. HUMULUS LUPULUS [Suspect]
     Dosage: UNK UKN, UNK
     Route: 064
  9. ELEVIT PRONATAL [Concomitant]
     Dosage: UNK UKN, UNK
     Route: 064
  10. VALPROINSAURE CHRONO [Concomitant]
     Dosage: UNK UKN, UNK
  11. INSULIN [Concomitant]
     Dosage: UNK UKN, UNK
  12. METOPROLOL [Concomitant]
     Dosage: UNK UKN, UNK
  13. SEROQUEL [Concomitant]
     Dosage: UNK UKN, UNK
  14. FALCIFOR//FOLIC ACID [Concomitant]
     Dosage: UNK UKN, UNK

REACTIONS (11)
  - Premature baby [Unknown]
  - Neonatal respiratory distress syndrome [Unknown]
  - Patent ductus arteriosus [Unknown]
  - Anaemia neonatal [Unknown]
  - Hyperbilirubinaemia [Unknown]
  - Hypoglycaemia neonatal [Unknown]
  - Inguinal hernia [Unknown]
  - Congenital genitourinary abnormality [Unknown]
  - Retinopathy [Unknown]
  - Tracheomalacia [Unknown]
  - Foetal exposure during pregnancy [Recovered/Resolved]
